FAERS Safety Report 15102064 (Version 2)
Quarter: 2019Q2

REPORT INFORMATION
  Report Type: Spontaneous
  Country: US (occurrence: US)
  Receive Date: 20180703
  Receipt Date: 20190515
  Transmission Date: 20190711
  Serious: Yes (Other)
  Sender: FDA-Public Use
  Company Number: US-SA-2018SA169242

PATIENT
  Sex: Female

DRUGS (1)
  1. AUBAGIO [Suspect]
     Active Substance: TERIFLUNOMIDE
     Indication: MULTIPLE SCLEROSIS
     Dosage: 14 MG, QD
     Route: 048
     Dates: start: 20171019

REACTIONS (5)
  - Myalgia [Unknown]
  - Menstrual disorder [Unknown]
  - Dehydration [Unknown]
  - Neuropathy peripheral [Unknown]
  - Carpal tunnel syndrome [Unknown]
